FAERS Safety Report 9537791 (Version 1)
Quarter: 2013Q3

REPORT INFORMATION
  Report Type: Spontaneous
  Country: JP (occurrence: JP)
  Receive Date: 20130919
  Receipt Date: 20130919
  Transmission Date: 20140515
  Serious: Yes (Other)
  Sender: FDA-Public Use
  Company Number: JP-PFIZER INC-2013263837

PATIENT
  Age: 48 Year
  Sex: Female

DRUGS (2)
  1. FLUOROURACIL [Suspect]
     Indication: OESOPHAGEAL SQUAMOUS CELL CARCINOMA
     Dosage: 750 MG/BODY/DAY FOR 5 DAYS
     Route: 042
     Dates: start: 200503
  2. CISPLATIN [Concomitant]
     Indication: OESOPHAGEAL SQUAMOUS CELL CARCINOMA
     Dosage: 100 MG/BODY/DAY
     Route: 042
     Dates: start: 200503

REACTIONS (1)
  - Hyperammonaemic encephalopathy [Recovering/Resolving]
